FAERS Safety Report 4614411-2 (Version None)
Quarter: 2005Q1

REPORT INFORMATION
  Report Type: 
  Country: None (occurrence: None)
  Receive Date: 20050315
  Receipt Date: 20050228
  Transmission Date: 20050727
  Serious: Yes (Other)
  Sender: FDA-Public Use
  Company Number: 2005BI004447

PATIENT
  Age: 47 Year
  Sex: Male

DRUGS (1)
  1. NATALIZUMAB [Suspect]
     Indication: MULTIPLE SCLEROSIS
     Dosage: 300 MG; QM; IV
     Route: 042
     Dates: start: 20050216, end: 20050216

REACTIONS (5)
  - DYSPHAGIA [None]
  - DYSPNOEA [None]
  - INFUSION SITE RASH [None]
  - SWELLING FACE [None]
  - URTICARIA [None]
